FAERS Safety Report 10788659 (Version 3)
Quarter: 2015Q2

REPORT INFORMATION
  Report Type: Report from Study
  Country: KR (occurrence: KR)
  Receive Date: 20150212
  Receipt Date: 20150511
  Transmission Date: 20150821
  Serious: Yes (Hospitalization)
  Sender: FDA-Public Use
  Company Number: KR-BAYER-2014-111911

PATIENT
  Age: 44 Year
  Sex: Female
  Weight: 40.9 kg

DRUGS (10)
  1. ACETAMINOPHEN. [Concomitant]
     Active Substance: ACETAMINOPHEN
     Dosage: 1950 MG DAILY
     Route: 048
     Dates: start: 20140820, end: 20140828
  2. OXYCODONE [Concomitant]
     Active Substance: OXYCODONE
     Dosage: 160 MG DAILY
     Route: 048
     Dates: start: 20140828, end: 20140905
  3. DEXTROSE W/SODIUM CHLORIDE [Concomitant]
     Indication: PROPHYLAXIS
     Dosage: DAILY DOSE 1000 MG
     Route: 042
     Dates: start: 20140813, end: 20140813
  4. NEURONTIN [Concomitant]
     Active Substance: GABAPENTIN
     Indication: PROPHYLAXIS
     Dosage: DAILY DOSE 900 MG
     Route: 048
     Dates: start: 20140718, end: 20140905
  5. STIVARGA [Suspect]
     Active Substance: REGORAFENIB
     Indication: COLORECTAL CANCER
     Dosage: 160 MG, DAILY
     Route: 048
     Dates: start: 20140728, end: 20140820
  6. OXYCONTIN [Concomitant]
     Active Substance: OXYCODONE HYDROCHLORIDE
     Dosage: DAILY DOSE 80 MG
     Route: 048
     Dates: start: 20140718, end: 20140722
  7. STIVARGA [Suspect]
     Active Substance: REGORAFENIB
     Indication: COLORECTAL CANCER
     Dosage: 160 MG, DAILY
     Route: 048
     Dates: start: 20140825, end: 20140905
  8. GABAPENTIN. [Concomitant]
     Active Substance: GABAPENTIN
     Indication: PROPHYLAXIS
     Dosage: DAILY DOSE 300 MG
     Route: 048
     Dates: start: 20140717, end: 20140717
  9. OXYCONTIN [Concomitant]
     Active Substance: OXYCODONE HYDROCHLORIDE
     Dosage: 80 MG DAILY
     Route: 048
     Dates: start: 20140717
  10. STIVARGA [Suspect]
     Active Substance: REGORAFENIB
     Indication: COLORECTAL CANCER
     Dosage: 160 MG, DAILY
     Route: 048
     Dates: start: 20140717, end: 20140724

REACTIONS (3)
  - Aspartate aminotransferase increased [Recovering/Resolving]
  - Alanine aminotransferase increased [Recovered/Resolved]
  - Device related infection [Recovered/Resolved]

NARRATIVE: CASE EVENT DATE: 20140724
